FAERS Safety Report 19591910 (Version 1)
Quarter: 2021Q3

REPORT INFORMATION
  Report Type: Report from Study
  Country: US (occurrence: US)
  Receive Date: 20210721
  Receipt Date: 20210721
  Transmission Date: 20211014
  Serious: Yes (Hospitalization)
  Sender: FDA-Public Use
  Company Number: US-ASTRAZENECA-2021A626073

PATIENT
  Sex: Female

DRUGS (7)
  1. TAGRISSO [Suspect]
     Active Substance: OSIMERTINIB
     Indication: NON-SMALL CELL LUNG CANCER
     Route: 048
     Dates: start: 20190512
  2. MORPHINE [Concomitant]
     Active Substance: MORPHINE
  3. CALCITRATE [Concomitant]
     Active Substance: CALCIUM CITRATE
  4. CITRACAL?D3 [Concomitant]
  5. SENOKOT [Concomitant]
     Active Substance: SENNOSIDES
  6. GABAPENTIN. [Concomitant]
     Active Substance: GABAPENTIN
  7. TURMERIC [Concomitant]
     Active Substance: HERBALS\TURMERIC

REACTIONS (2)
  - Wrist fracture [Not Recovered/Not Resolved]
  - Lung disorder [Not Recovered/Not Resolved]
